FAERS Safety Report 7956907-1 (Version None)
Quarter: 2011Q4

REPORT INFORMATION
  Report Type: 
  Country: None (occurrence: None)
  Receive Date: 20111130
  Receipt Date: 20111115
  Transmission Date: 20120403
  Serious: No
  Sender: FDA-Public Use
  Company Number: TPA2011A05975

PATIENT
  Age: 86 Year
  Sex: Female

DRUGS (8)
  1. FEBURIC (FEBUXOSTAT) [Suspect]
     Indication: HYPERURICAEMIA
     Dosage: 10 MG (10 MG, 1 IN 1 D) PER ORAL, 20 MG (20 MG, 1 IN 1 D) PER ORAL
     Route: 048
     Dates: start: 20110614, end: 20110629
  2. FEBURIC (FEBUXOSTAT) [Suspect]
     Indication: HYPERURICAEMIA
     Dosage: 10 MG (10 MG, 1 IN 1 D) PER ORAL, 20 MG (20 MG, 1 IN 1 D) PER ORAL
     Route: 048
     Dates: start: 20110630, end: 20110811
  3. ONEALFA TABLET (ALFACALCIDOL) [Concomitant]
  4. VOLTAREN [Concomitant]
  5. AMLODIPINE [Concomitant]
  6. FEREDAIM (FERROUS SODIUM CITRATE) [Concomitant]
  7. REBAMIPIDE (REBAMIPIDE) [Concomitant]
  8. MENIETOL (BETAHISTINE MESILATE) [Concomitant]

REACTIONS (4)
  - FEELING COLD [None]
  - CARPAL TUNNEL SYNDROME [None]
  - HYPOAESTHESIA [None]
  - CERVICOBRACHIAL SYNDROME [None]
